FAERS Safety Report 26114056 (Version 1)
Quarter: 2025Q4

REPORT INFORMATION
  Report Type: Report from Study
  Country: IN (occurrence: None)
  Receive Date: 20251202
  Receipt Date: 20251202
  Transmission Date: 20260117
  Serious: Yes (Other)
  Sender: UCB
  Company Number: IN-UCBSA-2025075454

PATIENT

DRUGS (10)
  1. LEVETIRACETAM [Suspect]
     Active Substance: LEVETIRACETAM
     Indication: Dystonia
     Dosage: UNK
  2. LEVETIRACETAM [Suspect]
     Active Substance: LEVETIRACETAM
     Indication: Off label use
  3. CARBIDOPA\LEVODOPA [Suspect]
     Active Substance: CARBIDOPA\LEVODOPA
     Indication: Dystonia
     Dosage: UNK
  4. CARBIDOPA [Suspect]
     Active Substance: CARBIDOPA
     Indication: Dystonia
     Dosage: UNK
  5. TRIHEXYPHENIDYL [Suspect]
     Active Substance: TRIHEXYPHENIDYL
     Indication: Dystonia
     Dosage: UNK
  6. CLONAZEPAM [Suspect]
     Active Substance: CLONAZEPAM
     Indication: Dystonia
     Dosage: UNK
  7. TETRABENAZINE [Suspect]
     Active Substance: TETRABENAZINE
     Indication: Dystonia
     Dosage: UNK
  8. BACLOFEN [Suspect]
     Active Substance: BACLOFEN
     Indication: Dystonia
     Dosage: UNK
  9. BOTULINUM TOXIN NOS [Suspect]
     Active Substance: BOTULINUM TOXIN NOS
     Indication: Dystonia
     Dosage: UNK
  10. VALPROATE [Suspect]
     Active Substance: VALPROIC ACID
     Indication: Dystonia
     Dosage: UNK

REACTIONS (3)
  - Dystonia [Unknown]
  - Myoclonus [Unknown]
  - Off label use [Unknown]
